FAERS Safety Report 4785815-2 (Version None)
Quarter: 2005Q3

REPORT INFORMATION
  Report Type: 
  Country: None (occurrence: None)
  Receive Date: 20050929
  Receipt Date: 20050422
  Transmission Date: 20060218
  Serious: Yes (Hospitalization)
  Sender: FDA-Public Use
  Company Number: T05-USA-03499-01

PATIENT
  Age: 75 Year
  Sex: Female

DRUGS (20)
  1. MEMANTINE HCL [Suspect]
     Indication: OPEN ANGLE GLAUCOMA
  2. DAPSONE [Concomitant]
  3. PRENATAL VITAMINS [Concomitant]
  4. FOLIC ACID [Concomitant]
  5. VITAMIN E (VITAMIN E/001105/) [Concomitant]
  6. VITAMIN B12 FOR INJECTION (CYANOCOBALAMIN) [Concomitant]
  7. CLARITIN [Concomitant]
  8. CALTRATE (CALCIUM CARBONATE) [Concomitant]
  9. FLONASE [Concomitant]
  10. ASPIRIN [Concomitant]
  11. NITROGLYCERIN [Concomitant]
  12. ACTONEL [Concomitant]
  13. ZETIA [Concomitant]
  14. DIOVAN [Concomitant]
  15. NEXIUM [Concomitant]
  16. PLAVIX [Concomitant]
  17. ULTRACET [Concomitant]
  18. PROPRANOLOL [Concomitant]
  19. MIACALCIN [Concomitant]
  20. VIOXX [Concomitant]

REACTIONS (6)
  - ACUTE MYOCARDIAL INFARCTION [None]
  - CHOLECYSTITIS INFECTIVE [None]
  - LUMBAR SPINAL STENOSIS [None]
  - PANCREATITIS [None]
  - SEPSIS [None]
  - URINARY TRACT INFECTION [None]
